FAERS Safety Report 7354405-X (Version None)
Quarter: 2011Q1

REPORT INFORMATION
  Report Type: 
  Country: None (occurrence: None)
  Receive Date: 20110316
  Receipt Date: 20110301
  Transmission Date: 20110831
  Serious: Yes (Hospitalization, Other)
  Sender: FDA-Public Use
  Company Number: PHHY2011FR17576

PATIENT
  Sex: Male

DRUGS (6)
  1. ZONEGRAN [Concomitant]
     Dosage: 50 MG, BID
     Route: 064
     Dates: start: 20101130, end: 20110109
  2. URBANYL [Suspect]
     Dosage: 20 MG, BID
     Route: 064
     Dates: start: 20101130, end: 20110109
  3. URBANYL [Suspect]
     Dosage: 10 MG, BID
     Route: 064
     Dates: start: 20100429, end: 20101130
  4. TEGRETOL [Suspect]
     Dosage: 400 MG, BID
     Route: 064
     Dates: start: 20101130, end: 20110109
  5. TEGRETOL [Suspect]
     Dosage: 800 MG, BID
     Route: 064
     Dates: start: 20100429, end: 20101130
  6. VITAMIN K TAB [Concomitant]
     Dosage: UNK
     Route: 064
     Dates: start: 20110101

REACTIONS (11)
  - APNOEA [None]
  - ASPIRATION BRONCHIAL [None]
  - HYPOCALCAEMIA [None]
  - FOETAL HEART RATE ABNORMAL [None]
  - BREATH SOUNDS ABNORMAL [None]
  - DRUG EXPOSURE DURING PREGNANCY [None]
  - RESPIRATORY RATE DECREASED [None]
  - SOMNOLENCE [None]
  - PULMONARY CONGESTION [None]
  - HYPOTONIA [None]
  - REGURGITATION [None]
